FAERS Safety Report 6392840-7 (Version None)
Quarter: 2009Q4

REPORT INFORMATION
  Report Type: 
  Country: None (occurrence: None)
  Receive Date: 20091007
  Receipt Date: 20090915
  Transmission Date: 20100525
  Serious: No
  Sender: FDA-Public Use
  Company Number: US-ALLERGAN-0912229US

PATIENT
  Age: 52 Year
  Sex: Female
  Weight: 63.492 kg

DRUGS (2)
  1. LATISSE [Suspect]
     Indication: HYPOTRICHOSIS
     Dosage: 1 GTT, QHS
     Route: 061
     Dates: start: 20090101, end: 20090101
  2. LATISSE [Suspect]
     Dosage: 1 GTT, QHS
     Route: 061
     Dates: start: 20090101, end: 20090101

REACTIONS (10)
  - BLEPHARITIS [None]
  - ERYTHEMA OF EYELID [None]
  - EYE DISORDER [None]
  - EYE IRRITATION [None]
  - EYE PRURITUS [None]
  - EYELID DISORDER [None]
  - EYELID IRRITATION [None]
  - EYELID OEDEMA [None]
  - EYELID PAIN [None]
  - SKIN HYPERPIGMENTATION [None]
